FAERS Safety Report 22106932 (Version 2)
Quarter: 2023Q2

REPORT INFORMATION
  Report Type: Spontaneous
  Country: US (occurrence: US)
  Receive Date: 20230317
  Receipt Date: 20230412
  Transmission Date: 20230722
  Serious: No
  Sender: FDA-Public Use
  Company Number: US-SA-SAC20230315001169

PATIENT
  Age: 43 Year
  Sex: Female
  Weight: 68.027 kg

DRUGS (1)
  1. DUPIXENT [Suspect]
     Active Substance: DUPILUMAB
     Indication: Chronic rhinosinusitis with nasal polyps
     Dosage: 300 MG, QOW
     Route: 058
     Dates: start: 20230126

REACTIONS (3)
  - Facial pain [Not Recovered/Not Resolved]
  - Oral pain [Not Recovered/Not Resolved]
  - Asthenopia [Unknown]

NARRATIVE: CASE EVENT DATE: 20230101
